FAERS Safety Report 22171569 (Version 3)
Quarter: 2023Q2

REPORT INFORMATION
  Report Type: Spontaneous
  Country: GB (occurrence: GB)
  Receive Date: 20230404
  Receipt Date: 20230510
  Transmission Date: 20230722
  Serious: Yes (Hospitalization, Other)
  Sender: FDA-Public Use
  Company Number: GB-MHRA-MED-202303291346520110-SDNVR

PATIENT
  Age: 76 Year

DRUGS (5)
  1. RISEDRONATE SODIUM [Suspect]
     Active Substance: RISEDRONATE SODIUM
     Indication: Osteoporosis
     Dosage: UNK (ONCE A WEEK)
     Route: 065
     Dates: start: 20140801, end: 20180801
  2. RISEDRONATE SODIUM [Suspect]
     Active Substance: RISEDRONATE SODIUM
     Dosage: 1 DOSAGE FORM, QW
     Route: 065
     Dates: start: 201405, end: 201809
  3. BISOPROLOL [Concomitant]
     Active Substance: BISOPROLOL
     Dosage: UNK
     Route: 065
  4. CALCIUM CARBONATE [Concomitant]
     Active Substance: CALCIUM CARBONATE
     Dosage: UNK
     Route: 065
  5. BISOPROLOL [Concomitant]
     Active Substance: BISOPROLOL
     Dosage: UNK
     Route: 065

REACTIONS (7)
  - Tooth loss [Recovered/Resolved with Sequelae]
  - Osteonecrosis [Recovered/Resolved with Sequelae]
  - Dysphonia [Unknown]
  - Cough [Unknown]
  - Reflux laryngitis [Not Recovered/Not Resolved]
  - Impaired healing [Not Recovered/Not Resolved]
  - Oesophagitis [Unknown]

NARRATIVE: CASE EVENT DATE: 20150101
